FAERS Safety Report 24553708 (Version 1)
Quarter: 2024Q4

REPORT INFORMATION
  Report Type: Spontaneous
  Country: JP (occurrence: JP)
  Receive Date: 20241028
  Receipt Date: 20241028
  Transmission Date: 20250114
  Serious: Yes (Other)
  Sender: AMGEN
  Company Number: JP-TAKEDA-2024TJP015237

PATIENT
  Age: 68 Year
  Sex: Male

DRUGS (1)
  1. VECTIBIX [Suspect]
     Active Substance: PANITUMUMAB
     Indication: Colon cancer
     Dosage: UNK
     Route: 041

REACTIONS (2)
  - Carcinoembryonic antigen increased [Unknown]
  - Dermatitis acneiform [Recovering/Resolving]
